FAERS Safety Report 11032542 (Version 1)
Quarter: 2015Q2

REPORT INFORMATION
  Report Type: Spontaneous
  Country: US (occurrence: None)
  Receive Date: 20150414
  Receipt Date: 20150414
  Transmission Date: 20150821
  Serious: Yes (Other)
  Sender: FDA-Public Use
  Company Number: 001898478A

PATIENT
  Age: 34 Year
  Sex: Female

DRUGS (2)
  1. PROACTIV PLUS PORE TARGETING TREATMENT [Suspect]
     Active Substance: BENZOYL PEROXIDE
     Indication: ACNE
     Dosage: DERMAL
     Dates: start: 20150312
  2. PROACTIVPLUS SKIN SMOOTHING EXFOLIATOR [Suspect]
     Active Substance: BENZOYL PEROXIDE
     Indication: ACNE
     Dosage: DERMAL
     Dates: start: 20150312

REACTIONS (6)
  - Drug hypersensitivity [None]
  - Burning sensation [None]
  - Application site vesicles [None]
  - Urticaria [None]
  - Pharyngeal oedema [None]
  - Throat tightness [None]

NARRATIVE: CASE EVENT DATE: 20150312
